FAERS Safety Report 7318074-7 (Version None)
Quarter: 2011Q1

REPORT INFORMATION
  Report Type: 
  Country: None (occurrence: None)
  Receive Date: 20110228
  Receipt Date: 20110218
  Transmission Date: 20110831
  Serious: Yes (Hospitalization)
  Sender: FDA-Public Use
  Company Number: 191666

PATIENT
  Age: 28 Year
  Sex: Female
  Weight: 75 kg

DRUGS (3)
  1. INDERAL [Concomitant]
     Indication: MIGRAINE
  2. AVONEX [Suspect]
     Indication: MULTIPLE SCLEROSIS
     Route: 030
     Dates: start: 19961010, end: 20040111
  3. AVONEX [Suspect]
     Route: 030
     Dates: start: 20040118

REACTIONS (3)
  - MULTIPLE SCLEROSIS RELAPSE [None]
  - VERTIGO [None]
  - INFLUENZA LIKE ILLNESS [None]
